FAERS Safety Report 24552694 (Version 1)
Quarter: 2024Q4

REPORT INFORMATION
  Report Type: Spontaneous
  Country: FR (occurrence: FR)
  Receive Date: 20241027
  Receipt Date: 20241027
  Transmission Date: 20250114
  Serious: Yes (Hospitalization, Other)
  Sender: AUROBINDO
  Company Number: FR-AFSSAPS-AN2024001358

PATIENT
  Age: 44 Year
  Sex: Male

DRUGS (3)
  1. OLANZAPINE [Interacting]
     Active Substance: OLANZAPINE
     Indication: Panic disorder
     Dosage: 15 MILLIGRAM
     Route: 048
     Dates: start: 20240923, end: 20240923
  2. QUETIAPINE [Interacting]
     Active Substance: QUETIAPINE
     Indication: Mental disorder
     Dosage: 150 MILLIGRAM, ONCE A DAY
     Route: 048
     Dates: start: 202408
  3. METHADONE [Interacting]
     Active Substance: METHADONE HYDROCHLORIDE
     Indication: Product used for unknown indication
     Dosage: 40 MILLIGRAM, ONCE A DAY
     Route: 048

REACTIONS (2)
  - Electrocardiogram QT prolonged [Recovered/Resolved]
  - Drug interaction [Recovered/Resolved]

NARRATIVE: CASE EVENT DATE: 20240923
